FAERS Safety Report 23451550 (Version 3)
Quarter: 2024Q1

REPORT INFORMATION
  Report Type: Spontaneous
  Country: US (occurrence: US)
  Receive Date: 20240129
  Receipt Date: 20240226
  Transmission Date: 20240410
  Serious: No
  Sender: FDA-Public Use
  Company Number: US-SA-SAC20240122000660

PATIENT
  Age: 82 Year
  Sex: Male

DRUGS (3)
  1. DUPIXENT [Interacting]
     Active Substance: DUPILUMAB
     Indication: Psoriasis
     Dosage: 600 MG, 1X
     Route: 058
     Dates: start: 20231220, end: 20231220
  2. DUPIXENT [Interacting]
     Active Substance: DUPILUMAB
     Dosage: 300 MG, QOW
     Route: 058
     Dates: start: 202401, end: 20240117
  3. METOPROLOL [Interacting]
     Active Substance: METOPROLOL
     Dosage: UNK

REACTIONS (10)
  - Pruritus [Unknown]
  - Skin burning sensation [Unknown]
  - Erythema [Unknown]
  - Skin exfoliation [Unknown]
  - Rash [Recovering/Resolving]
  - Pain of skin [Recovering/Resolving]
  - Drug interaction [Recovering/Resolving]
  - Rash [Unknown]
  - Drug hypersensitivity [Unknown]
  - Unintentional use for unapproved indication [Unknown]

NARRATIVE: CASE EVENT DATE: 20231201
